FAERS Safety Report 7557533-9 (Version None)
Quarter: 2011Q2

REPORT INFORMATION
  Report Type: 
  Country: None (occurrence: None)
  Receive Date: 20110620
  Receipt Date: 20110527
  Transmission Date: 20111010
  Serious: No
  Sender: FDA-Public Use
  Company Number: US-ROXANE LABORATORIES, INC.-2011-RO-00762RO

PATIENT
  Sex: Male

DRUGS (1)
  1. MEGESTROL ACETATE [Suspect]
     Indication: INCREASED APPETITE
     Dosage: 120 ML
     Route: 048
     Dates: start: 20110523

REACTIONS (1)
  - INCORRECT DOSE ADMINISTERED [None]
